FAERS Safety Report 6335948-4 (Version None)
Quarter: 2009Q3

REPORT INFORMATION
  Report Type: 
  Country: None (occurrence: None)
  Receive Date: 20090831
  Receipt Date: 20090831
  Transmission Date: 20100115
  Serious: Yes (Disabling)
  Sender: FDA-Public Use
  Company Number: None

PATIENT
  Sex: Female
  Weight: 65.7716 kg

DRUGS (1)
  1. ZICAM MATRIXX [Suspect]
     Dosage: AS RECOMMENDED NOSE SPRAY
     Route: 045
     Dates: start: 20040201, end: 20040208

REACTIONS (2)
  - AGEUSIA [None]
  - ANOSMIA [None]
